FAERS Safety Report 22680052 (Version 5)
Quarter: 2024Q3

REPORT INFORMATION
  Report Type: Report from Study
  Country: CA (occurrence: CA)
  Receive Date: 20230707
  Receipt Date: 20240812
  Transmission Date: 20241016
  Serious: Yes (Other)
  Sender: TAKEDA
  Company Number: CA-TAKEDA-2023TUS066221

PATIENT
  Age: 56 Year
  Sex: Female

DRUGS (13)
  1. VEDOLIZUMAB [Suspect]
     Active Substance: VEDOLIZUMAB
     Indication: Colitis ulcerative
     Dosage: 300 MILLIGRAM
     Route: 042
     Dates: start: 20220406
  2. VEDOLIZUMAB [Suspect]
     Active Substance: VEDOLIZUMAB
     Dosage: 300 MILLIGRAM
     Route: 042
  3. VEDOLIZUMAB [Suspect]
     Active Substance: VEDOLIZUMAB
     Dosage: 300 MILLIGRAM
     Route: 042
  4. VEDOLIZUMAB [Suspect]
     Active Substance: VEDOLIZUMAB
     Dosage: 300 MILLIGRAM
     Route: 042
  5. VEDOLIZUMAB [Suspect]
     Active Substance: VEDOLIZUMAB
     Dosage: 300 MILLIGRAM
     Route: 042
  6. VEDOLIZUMAB [Suspect]
     Active Substance: VEDOLIZUMAB
     Dosage: 300 MILLIGRAM, Q4WEEKS
     Route: 042
     Dates: start: 20240524
  7. PREDNISONE [Concomitant]
     Active Substance: PREDNISONE
     Dosage: 20 MILLIGRAM
  8. PREDNISONE [Concomitant]
     Active Substance: PREDNISONE
     Dosage: 15 MILLIGRAM, QD
  9. PREDNISONE [Concomitant]
     Active Substance: PREDNISONE
     Dosage: 40 MILLIGRAM
  10. FOLIC ACID [Concomitant]
     Active Substance: FOLIC ACID
     Indication: Anaemia
     Dosage: UNK
  11. VITAMIN D NOS [Concomitant]
     Active Substance: CHOLECALCIFEROL\ERGOCALCIFEROL
     Dosage: UNK
  12. METHYLCOBALAMIN [Concomitant]
     Active Substance: METHYLCOBALAMIN
     Dosage: UNK
  13. MESALAMINE [Concomitant]
     Active Substance: MESALAMINE
     Dosage: 1.2 GRAM
     Route: 048
     Dates: start: 20230627

REACTIONS (3)
  - Colitis ulcerative [Unknown]
  - Off label use [Unknown]
  - Dizziness [Unknown]

NARRATIVE: CASE EVENT DATE: 20240524
